FAERS Safety Report 7055510-8 (Version None)
Quarter: 2010Q4

REPORT INFORMATION
  Report Type: 
  Country: None (occurrence: None)
  Receive Date: 20101021
  Receipt Date: 20101012
  Transmission Date: 20110411
  Serious: Yes (Other)
  Sender: FDA-Public Use
  Company Number: JP-JNJFOC-20101002275

PATIENT
  Age: 10 Year
  Sex: Male

DRUGS (1)
  1. CONCERTA [Suspect]
     Indication: ATTENTION DEFICIT/HYPERACTIVITY DISORDER
     Dosage: TOOK MEDICATION ONLY ON SCHOOL DAYS AND DID NOT TAKE ON SCHOOL HOLIDAYS
     Route: 048

REACTIONS (6)
  - BODY HEIGHT BELOW NORMAL [None]
  - GROWTH RETARDATION [None]
  - HEADACHE [None]
  - INFECTION [None]
  - UNDERWEIGHT [None]
  - VOMITING [None]
